FAERS Safety Report 11287455 (Version 1)
Quarter: 2015Q2

REPORT INFORMATION
  Report Type: Spontaneous
  Country: US (occurrence: None)
  Receive Date: 20150623
  Receipt Date: 20150623
  Transmission Date: 20150821
  Serious: Yes (Other)
  Sender: FDA-Public Use
  Company Number: RB-72233-2015

PATIENT
  Sex: Female

DRUGS (1)
  1. DEXTROMETHORPHAN\GUAIFENESIN [Suspect]
     Active Substance: DEXTROMETHORPHAN\GUAIFENESIN
     Indication: PRODUCT USED FOR UNKNOWN INDICATION
     Dosage: (TOOK 6 TABLETS FROM THE CURRENT PACKAGE AND AN UNSPECIFIED NUMBER OF TABLETS FROM A PREVIOUS PACKAGE UNKNOWN)

REACTIONS (3)
  - Epistaxis [None]
  - Expired product administered [None]
  - Diarrhoea [None]
